FAERS Safety Report 14949845 (Version 1)
Quarter: 2018Q2

REPORT INFORMATION
  Report Type: Report from Study
  Country: None (occurrence: DE)
  Receive Date: 20180530
  Receipt Date: 20180530
  Transmission Date: 20180711
  Serious: Yes (Hospitalization)
  Sender: FDA-Public Use
  Company Number: DE-ABBVIE-18K-062-2367483-00

PATIENT
  Age: 75 Year
  Sex: Female
  Weight: 81 kg

DRUGS (6)
  1. HUMIRA [Suspect]
     Active Substance: ADALIMUMAB
     Indication: PSORIASIS
     Route: 058
  2. HUMIRA [Suspect]
     Active Substance: ADALIMUMAB
     Indication: PSORIASIS
     Route: 058
     Dates: start: 20140519
  3. SIMVAHEXAL [Concomitant]
     Active Substance: SIMVASTATIN
     Indication: PRODUCT USED FOR UNKNOWN INDICATION
  4. ASPIRIN. [Concomitant]
     Active Substance: ASPIRIN
     Indication: PRODUCT USED FOR UNKNOWN INDICATION
     Route: 048
  5. OMEPRAZOL [Concomitant]
     Active Substance: OMEPRAZOLE
     Indication: PRODUCT USED FOR UNKNOWN INDICATION
     Route: 048
  6. LISINOPRIL ATID [Concomitant]
     Indication: PRODUCT USED FOR UNKNOWN INDICATION
     Route: 048

REACTIONS (11)
  - Osteochondrosis [Recovered/Resolved]
  - Spinal osteoarthritis [Recovered/Resolved]
  - Sciatica [Recovered/Resolved]
  - Pain in extremity [Recovering/Resolving]
  - Spondylolisthesis [Recovered/Resolved]
  - Dislocation of vertebra [Recovered/Resolved]
  - Loss of control of legs [Recovered/Resolved]
  - Back pain [Recovering/Resolving]
  - Scoliosis [Recovered/Resolved]
  - Vertebral foraminal stenosis [Recovered/Resolved]
  - Lumbar spinal stenosis [Recovered/Resolved]

NARRATIVE: CASE EVENT DATE: 2017
